FAERS Safety Report 21562859 (Version 5)
Quarter: 2023Q1

REPORT INFORMATION
  Report Type: Spontaneous
  Country: IT (occurrence: IT)
  Receive Date: 20221107
  Receipt Date: 20230117
  Transmission Date: 20230418
  Serious: Yes (Death)
  Sender: FDA-Public Use
  Company Number: None

PATIENT
  Age: 23 Month
  Sex: Male
  Weight: 12 kg

DRUGS (3)
  1. PROQUAD [Suspect]
     Active Substance: MEASLES VIRUS STRAIN ENDERS^ ATTENUATED EDMONSTON LIVE ANTIGEN\MUMPS VIRUS STRAIN B LEVEL JERYL LYNN
     Indication: Immunisation
     Dosage: .5 MILLILITER
     Route: 058
     Dates: start: 20191016, end: 20191016
  2. STERILE DILUENT (WATER) [Suspect]
     Active Substance: WATER
     Dosage: UNK
     Dates: start: 20191016
  3. NIMENRIX [Concomitant]
     Active Substance: CLOSTRIDIUM TETANI TOXOID ANTIGEN (FORMALDEHYDE INACTIVATED)\MENINGOCOCCAL POLYSACCHARIDE VACCINE, G
     Indication: Immunisation
     Dosage: 1ST DOSE
     Route: 030
     Dates: start: 20191016, end: 20191016

REACTIONS (6)
  - Vomiting [Fatal]
  - Diarrhoea [Fatal]
  - Hypoglycaemia [Fatal]
  - Sopor [Fatal]
  - Acidosis [Fatal]
  - Cardiac arrest [Fatal]

NARRATIVE: CASE EVENT DATE: 20191030
